FAERS Safety Report 14799068 (Version 5)
Quarter: 2019Q4

REPORT INFORMATION
  Report Type: Report from Study
  Country: None (occurrence: CL)
  Receive Date: 20180424
  Receipt Date: 20191014
  Transmission Date: 20200122
  Serious: Yes (Hospitalization, Disabling, Other)
  Sender: FDA-Public Use
  Company Number: CL-ABBVIE-18K-034-2332734-00

PATIENT
  Age: 54 Year
  Sex: Male

DRUGS (6)
  1. TRAMADOL. [Suspect]
     Active Substance: TRAMADOL
     Indication: PRODUCT USED FOR UNKNOWN INDICATION
     Route: 065
  2. CELEBRA [Suspect]
     Active Substance: CELECOXIB
     Indication: PRODUCT USED FOR UNKNOWN INDICATION
     Route: 065
  3. HUMIRA [Suspect]
     Active Substance: ADALIMUMAB
     Indication: RHEUMATOID ARTHRITIS
     Route: 058
     Dates: start: 20171120
  4. MORPHINE DERIVED DRUG [Suspect]
     Active Substance: MORPHINE
     Indication: PRODUCT USED FOR UNKNOWN INDICATION
     Route: 048
  5. HUMIRA [Suspect]
     Active Substance: ADALIMUMAB
     Indication: RHEUMATOID ARTHRITIS
     Route: 058
     Dates: start: 20171120
  6. TRAMADOL. [Concomitant]
     Active Substance: TRAMADOL
     Indication: PRODUCT USED FOR UNKNOWN INDICATION
     Route: 048

REACTIONS (14)
  - Hernia [Unknown]
  - Rheumatoid arthritis [Recovered/Resolved]
  - Hypertension [Not Recovered/Not Resolved]
  - Lumbar vertebral fracture [Not Recovered/Not Resolved]
  - Drug hypersensitivity [Recovering/Resolving]
  - Dermatitis allergic [Recovering/Resolving]
  - Spinal decompression [Unknown]
  - Intervertebral disc protrusion [Unknown]
  - Sensory loss [Unknown]
  - Arthralgia [Recovered/Resolved]
  - Intervertebral disc protrusion [Not Recovered/Not Resolved]
  - Hemiplegia [Unknown]
  - Urticaria [Recovering/Resolving]
  - Glucose tolerance impaired [Not Recovered/Not Resolved]

NARRATIVE: CASE EVENT DATE: 201803
